FAERS Safety Report 9013651 (Version 1)
Quarter: 2013Q1

REPORT INFORMATION
  Report Type: Spontaneous
  Country: US (occurrence: None)
  Receive Date: 20130109
  Receipt Date: 20130109
  Transmission Date: 20140127
  Serious: Yes (Life-Threatening)
  Sender: FDA-Public Use
  Company Number: None

PATIENT
  Age: 65 Year
  Sex: Male
  Weight: 66.8 kg

DRUGS (2)
  1. MORPHINE [Suspect]
     Indication: PAIN
     Dosage: 15 MG
     Dates: start: 20120701
  2. MORPHINE [Suspect]
     Indication: PAIN
     Dosage: 30 MG EVERY DAY PO
     Route: 048
     Dates: start: 20120701

REACTIONS (13)
  - Overdose [None]
  - Hypotension [None]
  - Dysarthria [None]
  - Somnolence [None]
  - Sepsis [None]
  - Toxicity to various agents [None]
  - Oropharyngeal pain [None]
  - Nasopharyngitis [None]
  - Malaise [None]
  - Dizziness [None]
  - Sedation [None]
  - Tachypnoea [None]
  - Respiratory depression [None]
